FAERS Safety Report 4677977-2 (Version None)
Quarter: 2005Q2

REPORT INFORMATION
  Report Type: 
  Country: None (occurrence: None)
  Receive Date: 20050531
  Receipt Date: 20050524
  Transmission Date: 20051028
  Serious: Yes (Death)
  Sender: FDA-Public Use
  Company Number: 2005AC00777

PATIENT
  Age: 50 Year
  Sex: Male

DRUGS (4)
  1. SEROQUEL [Suspect]
     Indication: BIPOLAR I DISORDER
     Route: 048
     Dates: start: 20050426, end: 20050510
  2. LITHIUM [Concomitant]
  3. SEROZAT [Concomitant]
  4. SLEEPING MEDICATION [Concomitant]

REACTIONS (1)
  - COMPLETED SUICIDE [None]
